FAERS Safety Report 9059599 (Version 1)
Quarter: 2013Q1

REPORT INFORMATION
  Report Type: Spontaneous
  Country: US (occurrence: None)
  Receive Date: 20130206
  Receipt Date: 20130206
  Transmission Date: 20140127
  Serious: Yes (Other)
  Sender: FDA-Public Use
  Company Number: None

PATIENT
  Age: 36 Year
  Sex: Female

DRUGS (5)
  1. CLOMID [Suspect]
  2. PERGONAL [Suspect]
  3. FOLLISTIM [Suspect]
  4. LUPRON [Suspect]
  5. PROGESTERONE [Suspect]

REACTIONS (1)
  - Thrombosis [None]
